FAERS Safety Report 23589712 (Version 1)
Quarter: 2024Q1

REPORT INFORMATION
  Report Type: Report from Study
  Country: NL (occurrence: NL)
  Receive Date: 20240304
  Receipt Date: 20240304
  Transmission Date: 20240409
  Serious: Yes (Hospitalization)
  Sender: FDA-Public Use
  Company Number: NL-AstraZeneca-2024A047462

PATIENT
  Age: 5 Month
  Sex: Female
  Weight: 4.6 kg

DRUGS (1)
  1. SYNAGIS [Suspect]
     Active Substance: PALIVIZUMAB
     Indication: Product used for unknown indication
     Dosage: 15 MG/ KG MONTHLY
     Route: 030
     Dates: start: 20231206

REACTIONS (1)
  - Rhinovirus infection [Recovered/Resolved]
